FAERS Safety Report 9577095 (Version 1)
Quarter: 2013Q4

REPORT INFORMATION
  Report Type: Spontaneous
  Country: US (occurrence: US)
  Receive Date: 20131001
  Receipt Date: 20131001
  Transmission Date: 20140711
  Serious: No
  Sender: FDA-Public Use
  Company Number: US-AMGEN-USASP2013006432

PATIENT
  Age: 50 Year
  Sex: Male

DRUGS (6)
  1. ENBREL [Suspect]
     Indication: PSORIATIC ARTHROPATHY
     Dosage: 50 MG, QWK
     Route: 058
  2. AMLODIPIN                          /00972401/ [Concomitant]
     Dosage: 10 MG, UNK
  3. SIMVASTATIN [Concomitant]
     Dosage: 80 MG, UNK
  4. HYDROCHLOROTH [Concomitant]
     Dosage: 25 MG, UNK
  5. LANSOPRAZOLE [Concomitant]
     Dosage: 30 MG, UNK
  6. FENOFIBRATE [Concomitant]
     Dosage: 48 MG, UNK

REACTIONS (2)
  - Musculoskeletal discomfort [Unknown]
  - Pain in extremity [Unknown]
